FAERS Safety Report 5616323-4 (Version None)
Quarter: 2008Q1

REPORT INFORMATION
  Report Type: 
  Country: None (occurrence: None)
  Receive Date: 20080204
  Receipt Date: 20080121
  Transmission Date: 20080703
  Serious: Yes (Hospitalization, Disabling)
  Sender: FDA-Public Use
  Company Number: 023296

PATIENT
  Age: 44 Year
  Sex: Female

DRUGS (3)
  1. LITHIUM CARBONATE [Suspect]
     Indication: BIPOLAR DISORDER
     Dosage: 1500 MG/DAY
  2. CARBAMAZEPINE [Concomitant]
  3. PERPHENAZINE [Concomitant]

REACTIONS (14)
  - BLOOD CREATININE INCREASED [None]
  - BLOOD UREA INCREASED [None]
  - CEREBELLAR ATAXIA [None]
  - CEREBELLAR SYNDROME [None]
  - CEREBRAL ATROPHY [None]
  - DYSARTHRIA [None]
  - ENCEPHALOPATHY [None]
  - ERYTHEMA MULTIFORME [None]
  - HYPOTONIA [None]
  - METABOLIC DISORDER [None]
  - NUCLEAR MAGNETIC RESONANCE IMAGING BRAIN ABNORMAL [None]
  - POSITRON EMISSION TOMOGRAM ABNORMAL [None]
  - PYREXIA [None]
  - THERAPEUTIC AGENT TOXICITY [None]
